FAERS Safety Report 5371227-X (Version None)
Quarter: 2007Q2

REPORT INFORMATION
  Report Type: 
  Country: None (occurrence: None)
  Receive Date: 20070626
  Receipt Date: 20070615
  Transmission Date: 20071010
  Serious: Yes (Other)
  Sender: FDA-Public Use
  Company Number: GB-PFIZER INC-2007050821

PATIENT

DRUGS (2)
  1. SALAZOPYRIN [Suspect]
     Indication: COLITIS ULCERATIVE
     Route: 048
  2. SALAZOPYRIN [Suspect]
     Indication: CROHN'S DISEASE

REACTIONS (3)
  - CHOKING [None]
  - DEMENTIA [None]
  - DYSPHAGIA [None]
